FAERS Safety Report 10469766 (Version 1)
Quarter: 2014Q3

REPORT INFORMATION
  Report Type: Spontaneous
  Country: US (occurrence: None)
  Receive Date: 20140922
  Receipt Date: 20140922
  Transmission Date: 20150326
  Serious: No
  Sender: FDA-Public Use
  Company Number: None

PATIENT
  Age: 27 Year
  Sex: Female

DRUGS (1)
  1. LUPRON DEPOT [Suspect]
     Active Substance: LEUPROLIDE ACETATE
     Indication: ENDOMETRIOSIS
     Dosage: Q3M, IM.
     Route: 030
     Dates: start: 20140604, end: 20140604

REACTIONS (3)
  - Injection site reaction [None]
  - Furuncle [None]
  - Drug hypersensitivity [None]

NARRATIVE: CASE EVENT DATE: 20140604
